FAERS Safety Report 7992230-7 (Version None)
Quarter: 2011Q4

REPORT INFORMATION
  Report Type: 
  Country: None (occurrence: None)
  Receive Date: 20111219
  Receipt Date: 20110725
  Transmission Date: 20120403
  Serious: Yes (Other)
  Sender: FDA-Public Use
  Company Number: US-ASTRAZENECA-2011SE44221

PATIENT
  Sex: Female

DRUGS (3)
  1. CRESTOR [Suspect]
     Route: 048
     Dates: start: 20110701
  2. METFORMIN HCL [Concomitant]
     Indication: DIABETES MELLITUS
  3. OXYCODONE HCL [Concomitant]
     Indication: FIBROMYALGIA

REACTIONS (1)
  - SWOLLEN TONGUE [None]
